FAERS Safety Report 9322470 (Version 2)
Quarter: 2013Q2

REPORT INFORMATION
  Report Type: Report from Study
  Country: BR (occurrence: BR)
  Receive Date: 20130531
  Receipt Date: 20130611
  Transmission Date: 20140414
  Serious: Yes (Death, Hospitalization, Disabling)
  Sender: FDA-Public Use
  Company Number: BR-ACTELION-A-CH2013-83409

PATIENT
  Age: 35 Year
  Sex: Female
  Weight: 60 kg

DRUGS (16)
  1. BOSENTAN [Suspect]
     Indication: PULMONARY ARTERIAL HYPERTENSION
     Dosage: 125 MG, BID
     Route: 048
     Dates: start: 20100623, end: 20130519
  2. SILDENAFIL [Concomitant]
     Dosage: 40 MG, TID
     Route: 048
     Dates: start: 20120917, end: 20130519
  3. SILDENAFIL [Concomitant]
     Dosage: 20 MG, TID
     Route: 048
     Dates: start: 200811, end: 20101020
  4. SILDENAFIL [Concomitant]
     Dosage: 40 MG, TID
     Route: 048
     Dates: start: 20101020, end: 201105
  5. SILDENAFIL [Concomitant]
     Dosage: 20 MG, TID
     Route: 048
     Dates: start: 201105, end: 20120917
  6. PREDNISONE [Concomitant]
     Dosage: 30 MG, QD
     Route: 048
     Dates: start: 2005
  7. RITUXIMAB [Concomitant]
     Dosage: 500 MG, UNK
     Route: 048
     Dates: start: 20130507, end: 20130507
  8. WARFARIN [Concomitant]
     Dosage: UNK
     Route: 048
     Dates: start: 200810
  9. FERROUS SULFATE [Concomitant]
     Dosage: UNK
     Route: 048
     Dates: start: 200904
  10. FUROSEMIDE [Concomitant]
     Dosage: UNK
     Route: 048
     Dates: start: 2008
  11. SLOW-K [Concomitant]
     Dosage: UNK
     Route: 048
     Dates: start: 200901
  12. VITAMIN D [Concomitant]
     Dosage: UNK
     Route: 048
     Dates: start: 200904
  13. CALCIUM CARBONATE [Concomitant]
     Dosage: UNK
     Route: 048
     Dates: start: 200904
  14. OMEPRAZOLE [Concomitant]
     Dosage: UNK
     Route: 048
     Dates: start: 2007
  15. BUSCOPAN [Concomitant]
  16. TRAMADOL [Concomitant]
     Dosage: UNK
     Dates: start: 20100203

REACTIONS (12)
  - Cardiac failure [Fatal]
  - Pulmonary arterial hypertension [Fatal]
  - Acute pulmonary oedema [Fatal]
  - Systemic lupus erythematosus [Fatal]
  - Renal failure chronic [Fatal]
  - Concomitant disease aggravated [Fatal]
  - Diarrhoea [Not Recovered/Not Resolved]
  - Abdominal pain [Not Recovered/Not Resolved]
  - Pyrexia [Not Recovered/Not Resolved]
  - Nausea [Not Recovered/Not Resolved]
  - Vomiting [Not Recovered/Not Resolved]
  - Sepsis [Not Recovered/Not Resolved]
